FAERS Safety Report 14903546 (Version 5)
Quarter: 2018Q3

REPORT INFORMATION
  Report Type: Spontaneous
  Country: IT (occurrence: IT)
  Receive Date: 20180516
  Receipt Date: 20180712
  Transmission Date: 20181010
  Serious: Yes (Life-Threatening, Hospitalization, Other)
  Sender: FDA-Public Use
  Company Number: IT-MYLANLABS-2018M1031907

PATIENT
  Age: 40 Day
  Sex: Male
  Weight: 4.5 kg

DRUGS (3)
  1. LAMOTRIGINE. [Suspect]
     Active Substance: LAMOTRIGINE
     Dosage: 200 MG, UNK
     Route: 064
  2. LAMOTRIGINE. [Suspect]
     Active Substance: LAMOTRIGINE
     Indication: PRODUCT USED FOR UNKNOWN INDICATION
     Dosage: 150 MG, UNK
     Route: 063
  3. LAMOTRIGINE. [Suspect]
     Active Substance: LAMOTRIGINE
     Dosage: 120 MG, UNK
     Route: 064

REACTIONS (11)
  - Exposure via breast milk [Unknown]
  - Decreased appetite [Recovering/Resolving]
  - Food refusal [Recovering/Resolving]
  - Normochromic normocytic anaemia [Recovering/Resolving]
  - Abdominal distension [Recovered/Resolved]
  - Mucosal discolouration [Recovering/Resolving]
  - Foetal exposure during pregnancy [Recovering/Resolving]
  - Pallor [Recovering/Resolving]
  - Flatulence [Recovering/Resolving]
  - Neutropenia [Recovering/Resolving]
  - Crying [Recovering/Resolving]
